FAERS Safety Report 5285565-2 (Version None)
Quarter: 2007Q1

REPORT INFORMATION
  Report Type: 
  Country: None (occurrence: None)
  Receive Date: 20061229
  Receipt Date: 20060914
  Transmission Date: 20070707
  Serious: Yes (Other)
  Sender: FDA-Public Use
  Company Number: 2006UW18080

PATIENT
  Age: 79 Year
  Sex: Male
  Weight: 136.07 kg

DRUGS (4)
  1. CRESTOR [Suspect]
     Indication: BLOOD CHOLESTEROL INCREASED
     Dosage: 10 MG PO
     Route: 048
     Dates: start: 20060801
  2. BENICAR [Concomitant]
  3. FUROSEMIDE [Concomitant]
  4. COLCHICINE [Concomitant]

REACTIONS (2)
  - CONSTIPATION [None]
  - FAECES HARD [None]
